FAERS Safety Report 4875958-7 (Version None)
Quarter: 2005Q4

REPORT INFORMATION
  Report Type: 
  Country: None (occurrence: None)
  Receive Date: 20051205
  Receipt Date: 20051007
  Transmission Date: 20060501
  Serious: Yes (Hospitalization)
  Sender: FDA-Public Use
  Company Number: USA0507104071

PATIENT
  Age: 54 Year
  Sex: Female
  Weight: 105 kg

DRUGS (2)
  1. GEMZAR [Suspect]
     Indication: LUNG CANCER METASTATIC
     Dosage: 1900 MG
     Dates: start: 20050722, end: 20050916
  2. ALIMTA [Suspect]
     Indication: LUNG CANCER METASTATIC
     Dosage: 935 MG
     Dates: start: 20041110, end: 20050111

REACTIONS (3)
  - DRUG INEFFECTIVE [None]
  - LYMPHOEDEMA [None]
  - PULMONARY EMBOLISM [None]
